FAERS Safety Report 15452016 (Version 1)
Quarter: 2018Q4

REPORT INFORMATION
  Report Type: Spontaneous
  Country: GR (occurrence: GR)
  Receive Date: 20181001
  Receipt Date: 20181001
  Transmission Date: 20190204
  Serious: Yes (Life-Threatening, Other)
  Sender: FDA-Public Use
  Company Number: GR-PFIZER INC-2018391502

PATIENT
  Age: 90 Year
  Sex: Male

DRUGS (2)
  1. PIPERACILLIN/TAZOBACTAM [Suspect]
     Active Substance: PIPERACILLIN SODIUM\TAZOBACTAM SODIUM
     Indication: RESPIRATORY TRACT INFECTION
     Dosage: 4.5 G, EVERY 6 HOURS
     Route: 042
     Dates: start: 20180906, end: 20180906
  2. MOXIFLOXACIN. [Concomitant]
     Active Substance: MOXIFLOXACIN
     Indication: RESPIRATORY TRACT INFECTION
     Dosage: 400 MG, 1X/DAY
     Route: 042
     Dates: start: 20180903, end: 20180907

REACTIONS (5)
  - Hypoxia [Recovering/Resolving]
  - Syncope [Recovering/Resolving]
  - Anaphylactic shock [Recovering/Resolving]
  - Bronchospasm [Recovering/Resolving]
  - Hypotension [Recovering/Resolving]

NARRATIVE: CASE EVENT DATE: 20180906
